FAERS Safety Report 15157515 (Version 1)
Quarter: 2018Q3

REPORT INFORMATION
  Report Type: Spontaneous
  Country: US (occurrence: US)
  Receive Date: 20180718
  Receipt Date: 20180718
  Transmission Date: 20181010
  Serious: Yes (Hospitalization, Other)
  Sender: FDA-Public Use
  Company Number: US-ABBVIE-18K-163-2405307-00

PATIENT
  Age: 63 Year
  Sex: Male

DRUGS (10)
  1. ENBREL [Suspect]
     Active Substance: ETANERCEPT
     Indication: RHEUMATOID ARTHRITIS
     Route: 065
     Dates: start: 201101, end: 201104
  2. XELJANZ XR [Suspect]
     Active Substance: TOFACITINIB CITRATE
     Indication: RHEUMATOID ARTHRITIS
     Route: 048
     Dates: start: 201408
  3. ORENCIA [Suspect]
     Active Substance: ABATACEPT
     Indication: RHEUMATOID ARTHRITIS
     Route: 065
     Dates: start: 201202
  4. METHOTREXATE. [Concomitant]
     Active Substance: METHOTREXATE
     Indication: RHEUMATOID ARTHRITIS
     Route: 065
     Dates: start: 201604
  5. CODEINE [Concomitant]
     Active Substance: CODEINE
     Indication: PRODUCT USED FOR UNKNOWN INDICATION
  6. ENBREL [Suspect]
     Active Substance: ETANERCEPT
     Route: 065
  7. ENBREL [Suspect]
     Active Substance: ETANERCEPT
     Route: 065
     Dates: start: 201608
  8. LORTAB [Concomitant]
     Active Substance: ACETAMINOPHEN\HYDROCODONE BITARTRATE
     Indication: PRODUCT USED FOR UNKNOWN INDICATION
  9. HUMIRA [Suspect]
     Active Substance: ADALIMUMAB
     Indication: RHEUMATOID ARTHRITIS
     Route: 058
     Dates: start: 201104
  10. XELJANZ XR [Suspect]
     Active Substance: TOFACITINIB CITRATE
     Route: 050
     Dates: start: 201608

REACTIONS (11)
  - Abdominal abscess [Unknown]
  - Platelet count decreased [Unknown]
  - Medical device site infection [Unknown]
  - Drug effect decreased [Unknown]
  - Pneumonia [Unknown]
  - Surgery [Unknown]
  - Bronchitis [Unknown]
  - Liver function test increased [Unknown]
  - Bone marrow failure [Unknown]
  - Hip arthroplasty [Unknown]
  - Hepatic fibrosis [Unknown]

NARRATIVE: CASE EVENT DATE: 2018
